FAERS Safety Report 13265838 (Version 3)
Quarter: 2017Q1

REPORT INFORMATION
  Report Type: Report from Study
  Country: IT (occurrence: IT)
  Receive Date: 20170223
  Receipt Date: 20170317
  Transmission Date: 20170428
  Serious: Yes (Hospitalization)
  Sender: FDA-Public Use
  Company Number: PHHO2017IT003620

PATIENT
  Age: 58 Year
  Sex: Female
  Weight: 34 kg

DRUGS (6)
  1. IMODIUM [Concomitant]
     Active Substance: LOPERAMIDE HYDROCHLORIDE
     Indication: DIARRHOEA
     Dosage: 1 UNIT PRN
     Route: 065
     Dates: start: 20160127
  2. PARACETAMOL [Concomitant]
     Active Substance: ACETAMINOPHEN
     Indication: PAIN
     Dosage: 1 G, PRN (MAX 2G)
     Route: 065
     Dates: start: 20160817, end: 20170213
  3. LDK378 [Suspect]
     Active Substance: CERITINIB
     Indication: NON-SMALL CELL LUNG CANCER
     Dosage: 300 MG/M2, UNK
     Route: 048
     Dates: start: 20160127, end: 20170212
  4. LDK378 [Suspect]
     Active Substance: CERITINIB
     Dosage: 300 MG/M2, UNK
     Route: 048
     Dates: start: 20170222
  5. PARACODINA [Concomitant]
     Active Substance: ASPIRIN\CAFFEINE\DIHYDROCODEINE BITARTRATE
     Indication: COUGH
     Dosage: 1 UNK, PRN
     Route: 065
  6. DELORAZEPAM [Concomitant]
     Active Substance: DELORAZEPAM
     Indication: INSOMNIA
     Dosage: 13 DRP, QD
     Route: 065
     Dates: end: 20170213

REACTIONS (2)
  - Acute kidney injury [Recovered/Resolved]
  - Liver function test abnormal [Recovered/Resolved]

NARRATIVE: CASE EVENT DATE: 20170213
